FAERS Safety Report 5421994-1 (Version None)
Quarter: 2007Q3

REPORT INFORMATION
  Report Type: 
  Country: None (occurrence: None)
  Receive Date: 20070822
  Receipt Date: 20070813
  Transmission Date: 20080115
  Serious: Yes (Hospitalization)
  Sender: FDA-Public Use
  Company Number: PHEH2007US10005

PATIENT
  Age: 35 Year
  Sex: Female

DRUGS (6)
  1. GLEEVEC [Suspect]
     Indication: CHRONIC MYELOID LEUKAEMIA
     Dosage: 400 MG, QD
     Route: 048
     Dates: start: 20061001
  2. GAMMAR I.V. [Suspect]
     Indication: HYPOGAMMAGLOBULINAEMIA
     Dosage: 25 G, ONCE/SINGLE
     Dates: start: 20070330
  3. GAMMAR I.V. [Suspect]
     Dosage: 25 G, ONCE/SINGLE
     Dates: start: 20070531
  4. GAMMAR I.V. [Suspect]
     Dosage: 25 G, ONCE/SINGLE
     Dates: start: 20070621
  5. GAMMAR I.V. [Suspect]
     Dosage: 25 G, ONCE/SINGLE
     Dates: start: 20070427
  6. GAMMAR I.V. [Suspect]
     Dosage: 30 G, ONCE/SINGLE
     Dates: start: 20070719

REACTIONS (10)
  - CHOLECYSTECTOMY [None]
  - DEPRESSION [None]
  - DYSURIA [None]
  - HEADACHE [None]
  - MALAISE [None]
  - MENINGITIS ASEPTIC [None]
  - MIGRAINE [None]
  - PYREXIA [None]
  - RASH PUSTULAR [None]
  - TRANSFUSION REACTION [None]
